FAERS Safety Report 5288719-4 (Version None)
Quarter: 2007Q2

REPORT INFORMATION
  Report Type: 
  Country: None (occurrence: None)
  Receive Date: 20070405
  Receipt Date: 20070330
  Transmission Date: 20071010
  Serious: Yes (Hospitalization, Other)
  Sender: FDA-Public Use
  Company Number: 2006UW12284

PATIENT
  Age: 41 Year
  Sex: Female
  Weight: 81.4 kg

DRUGS (10)
  1. SEROQUEL [Suspect]
     Indication: BIPOLAR DISORDER
     Dosage: 25 - 300 MG
     Route: 048
     Dates: start: 20040209, end: 20061109
  2. ZYPREXA [Suspect]
     Dates: start: 19990101, end: 20030101
  3. HALDOL [Concomitant]
     Dates: start: 20040112, end: 20070103
  4. RISPERDAL [Concomitant]
  5. OXYCODONE HCL [Concomitant]
     Dosage: 5/325 MG
     Dates: start: 20061019
  6. CARBAMAZEPINE [Concomitant]
     Dates: start: 20040112
  7. HALOPERIDOL [Concomitant]
     Dates: start: 20040112
  8. TRAZODONE HCL [Concomitant]
     Dates: start: 20061019
  9. BENZTROPINE MESYLATE [Concomitant]
     Dates: start: 20040112
  10. BUPROPION HCL [Concomitant]
     Dates: start: 20050818, end: 20060328

REACTIONS (4)
  - CARDIAC DISORDER [None]
  - MOVEMENT DISORDER [None]
  - NEOPLASM [None]
  - TARDIVE DYSKINESIA [None]
